FAERS Safety Report 8758171 (Version 1)
Quarter: 2012Q4

REPORT INFORMATION
  Report Type: 
  Country: US (occurrence: US)
  Receive Date: 20120828
  Receipt Date: 20120828
  Transmission Date: 20130627
  Serious: Yes (Hospitalization)
  Sender: FDA-Public Use
  Company Number: CHPA2012US018608

PATIENT
  Age: 64 None
  Sex: Female

DRUGS (1)
  1. NUPERCAINAL [Suspect]
     Indication: HAEMORRHOIDS
     Dosage: Small dab, twice daily
     Route: 061

REACTIONS (4)
  - Intestinal obstruction [Recovered/Resolved]
  - Diarrhoea [Not Recovered/Not Resolved]
  - Anal pruritus [Not Recovered/Not Resolved]
  - Hysterectomy [None]
